FAERS Safety Report 24796564 (Version 1)
Quarter: 2025Q1

REPORT INFORMATION
  Report Type: Spontaneous
  Country: MA (occurrence: MA)
  Receive Date: 20250101
  Receipt Date: 20250101
  Transmission Date: 20250409
  Serious: Yes (Death, Other)
  Sender: AMGEN
  Company Number: MA-AMGEN LTD-MARSP2024253838

PATIENT

DRUGS (1)
  1. ADALIMUMAB [Suspect]
     Active Substance: ADALIMUMAB
     Indication: Crohn^s disease
     Route: 065

REACTIONS (9)
  - Death [Fatal]
  - Crohn^s disease [Unknown]
  - Thymoma [Unknown]
  - Tuberculosis [Unknown]
  - Hepatitis [Unknown]
  - Anaphylactic shock [Unknown]
  - Drug specific antibody present [Unknown]
  - Psoriasis [Unknown]
  - Hypersensitivity [Unknown]
